FAERS Safety Report 7961299-8 (Version None)
Quarter: 2011Q4

REPORT INFORMATION
  Report Type: 
  Country: None (occurrence: None)
  Receive Date: 20111207
  Receipt Date: 20111122
  Transmission Date: 20120403
  Serious: Yes (Other)
  Sender: FDA-Public Use
  Company Number: PHHY2011US103036

PATIENT
  Age: 89 Year
  Sex: Female

DRUGS (1)
  1. IMATINIB MESYLATE [Suspect]
     Indication: GASTROINTESTINAL STROMAL TUMOUR
     Dosage: 400 MG /DAY

REACTIONS (8)
  - ANGIOCENTRIC LYMPHOMA [None]
  - LYMPHOPENIA [None]
  - NEOPLASM PROGRESSION [None]
  - NEOPLASM MALIGNANT [None]
  - SUBCUTANEOUS NODULE [None]
  - LUNG INFILTRATION [None]
  - LEUKOPENIA [None]
  - DYSPNOEA [None]
